FAERS Safety Report 5919707-X (Version None)
Quarter: 2008Q4

REPORT INFORMATION
  Report Type: 
  Country: None (occurrence: None)
  Receive Date: 20081015
  Receipt Date: 20081013
  Transmission Date: 20090506
  Serious: Yes (Hospitalization)
  Sender: FDA-Public Use
  Company Number: US-ASTRAZENECA-2008UW22377

PATIENT
  Sex: Female

DRUGS (7)
  1. ENTOCORT EC [Suspect]
     Indication: CROHN'S DISEASE
     Route: 048
  2. PENTASA [Concomitant]
  3. SYNTHROID [Concomitant]
  4. ASPIRIN [Concomitant]
  5. ACTONEL [Concomitant]
  6. ALDACTONE [Concomitant]
  7. ATIVAN [Concomitant]

REACTIONS (3)
  - PANCYTOPENIA [None]
  - RENAL FAILURE [None]
  - SPLENOMEGALY [None]
